FAERS Safety Report 16745604 (Version 1)
Quarter: 2019Q3

REPORT INFORMATION
  Report Type: Spontaneous
  Country: US (occurrence: US)
  Receive Date: 20190827
  Receipt Date: 20190827
  Transmission Date: 20191005
  Serious: Yes (Hospitalization)
  Sender: FDA-Public Use
  Company Number: US-TEVA-2019-US-1098666

PATIENT
  Age: 30 Year
  Sex: Female

DRUGS (7)
  1. NIFEDIPINE XL [Suspect]
     Active Substance: NIFEDIPINE
     Dosage: 60 MILLIGRAM DAILY;
     Route: 065
  2. NIFEDIPINE XL [Suspect]
     Active Substance: NIFEDIPINE
     Indication: GESTATIONAL HYPERTENSION
     Dosage: 30 MILLIGRAM DAILY;
     Route: 065
  3. LABETALOL [Suspect]
     Active Substance: LABETALOL\LABETALOL HYDROCHLORIDE
     Route: 042
  4. LABETALOL [Suspect]
     Active Substance: LABETALOL\LABETALOL HYDROCHLORIDE
     Route: 042
  5. MAGNESIUM SULFATE. [Suspect]
     Active Substance: MAGNESIUM SULFATE
     Indication: PRE-ECLAMPSIA
     Route: 065
  6. LABETALOL [Suspect]
     Active Substance: LABETALOL\LABETALOL HYDROCHLORIDE
     Indication: PRE-ECLAMPSIA
     Route: 042
  7. BETAMETHASONE. [Suspect]
     Active Substance: BETAMETHASONE
     Indication: PRE-ECLAMPSIA
     Route: 065

REACTIONS (4)
  - Normal newborn [Unknown]
  - Raynaud^s phenomenon [Recovered/Resolved]
  - Maternal exposure during pregnancy [Unknown]
  - Symptom masked [Recovered/Resolved]
